FAERS Safety Report 11997403 (Version 1)
Quarter: 2016Q1

REPORT INFORMATION
  Report Type: Spontaneous
  Country: US (occurrence: None)
  Receive Date: 20160202
  Receipt Date: 20160202
  Transmission Date: 20160526
  Serious: Yes (Hospitalization)
  Sender: FDA-Public Use
  Company Number: None

PATIENT
  Age: 63 Year
  Sex: Male
  Weight: 77.9 kg

DRUGS (2)
  1. TRAMADOL. [Suspect]
     Active Substance: TRAMADOL
     Indication: PAIN
     Route: 048
     Dates: start: 20151002, end: 20151002
  2. QUETIAPINE [Suspect]
     Active Substance: QUETIAPINE
     Indication: DEPRESSION
     Route: 048
     Dates: start: 20151002, end: 20151002

REACTIONS (7)
  - Hypotension [None]
  - Tachycardia [None]
  - Alcohol use [None]
  - Suicide attempt [None]
  - Confusional state [None]
  - Intentional overdose [None]
  - Dysarthria [None]

NARRATIVE: CASE EVENT DATE: 20151002
